FAERS Safety Report 7996642-7 (Version None)
Quarter: 2011Q4

REPORT INFORMATION
  Report Type: 
  Country: None (occurrence: None)
  Receive Date: 20111221
  Receipt Date: 20111206
  Transmission Date: 20120403
  Serious: Yes (Hospitalization)
  Sender: FDA-Public Use
  Company Number: GB-RANBAXY-2011US-51175

PATIENT
  Age: 32 Year
  Sex: Female

DRUGS (1)
  1. ACETAMINOPHEN [Suspect]
     Indication: PRODUCT USED FOR UNKNOWN INDICATION
     Dosage: UNK
     Route: 048

REACTIONS (7)
  - TOXICITY TO VARIOUS AGENTS [None]
  - COMA [None]
  - HEPATIC FAILURE [None]
  - METABOLIC ACIDOSIS [None]
  - BLOOD GLUCOSE INCREASED [None]
  - RENAL FAILURE [None]
  - PANCYTOPENIA [None]
